FAERS Safety Report 17687888 (Version 1)
Quarter: 2020Q2

REPORT INFORMATION
  Report Type: Spontaneous
  Country: US (occurrence: US)
  Receive Date: 20200417
  Receipt Date: 20200417
  Transmission Date: 20200714
  Serious: Yes (Hospitalization)
  Sender: FDA-Public Use
  Company Number: None

PATIENT
  Age: 70 Year
  Sex: Female
  Weight: 64 kg

DRUGS (1)
  1. VALBENAZINE (VALBENAZINE 40MG CAP) [Suspect]
     Active Substance: VALBENAZINE
     Indication: TARDIVE DYSKINESIA
     Route: 048
     Dates: start: 20190507, end: 20190626

REACTIONS (4)
  - Therapy interrupted [None]
  - Urinary retention [None]
  - Blood creatinine increased [None]
  - Urinary tract infection [None]

NARRATIVE: CASE EVENT DATE: 20190607
